FAERS Safety Report 8089177-7 (Version None)
Quarter: 2012Q1

REPORT INFORMATION
  Report Type: 
  Country: None (occurrence: None)
  Receive Date: 20120128
  Receipt Date: 20110628
  Transmission Date: 20120608
  Serious: No
  Sender: FDA-Public Use
  Company Number: US-ABBOTT-11P-163-0732689-00

PATIENT
  Sex: Male

DRUGS (3)
  1. COREG [Concomitant]
     Indication: HYPERTENSION
  2. HUMIRA [Suspect]
     Indication: PSORIASIS
     Dosage: 80 MGS DAY ONE AND 40 MGS ONE WEEK LATER
     Dates: start: 20110615
  3. COREG [Concomitant]
     Indication: CARDIAC DISORDER

REACTIONS (1)
  - INJECTION SITE PAIN [None]
